FAERS Safety Report 9968235 (Version 1)
Quarter: 2014Q1

REPORT INFORMATION
  Report Type: Report from Study
  Country: US (occurrence: US)
  Receive Date: 20140306
  Receipt Date: 20140306
  Transmission Date: 20141002
  Serious: No
  Sender: FDA-Public Use
  Company Number: US-ABBVIE-13P-163-1146321-00

PATIENT
  Age: 28 Year
  Sex: Female
  Weight: 52.2 kg

DRUGS (14)
  1. HUMIRA [Suspect]
     Indication: CROHN^S DISEASE
     Dates: start: 20130124, end: 20130727
  2. PRENATAL VITAMINS [Concomitant]
     Indication: PRODUCT USED FOR UNKNOWN INDICATION
     Dosage: PILL
     Route: 048
     Dates: start: 20121025, end: 20130727
  3. CALCIUM + VITAMIN D [Concomitant]
     Indication: PRODUCT USED FOR UNKNOWN INDICATION
     Route: 048
     Dates: start: 20121025, end: 20130727
  4. FOLIC ACID [Concomitant]
     Indication: VITAMIN SUPPLEMENTATION
     Route: 048
     Dates: start: 20121221, end: 20130727
  5. FOLIC ACID [Concomitant]
     Indication: VITAMIN B12 DECREASED
     Route: 048
     Dates: start: 20121025, end: 20130727
  6. ZOFRAN [Concomitant]
     Indication: NAUSEA
     Dosage: DK DOSE
     Route: 042
     Dates: start: 20121115, end: 20121115
  7. ZOFRAN [Concomitant]
     Route: 048
     Dates: start: 20121211, end: 20130213
  8. ZOFRAN [Concomitant]
     Dosage: 3.5 TIMES A WEEK
     Route: 048
     Dates: start: 20130213, end: 20130317
  9. TYLENOL EXTRA STRENGTH [Concomitant]
     Indication: HEADACHE
     Route: 048
     Dates: start: 20121025, end: 20130727
  10. PROZAC [Concomitant]
     Indication: DEPRESSION
     Route: 048
     Dates: start: 20121025, end: 20130117
  11. PROZAC [Concomitant]
     Route: 048
     Dates: start: 20130118, end: 20130727
  12. BENADRYL [Concomitant]
     Indication: INSOMNIA
     Dosage: PILL
     Route: 048
     Dates: start: 20130117, end: 20130501
  13. BENADRYL [Concomitant]
     Indication: ANXIETY
  14. PENTASA [Concomitant]
     Indication: CROHN^S DISEASE
     Route: 048
     Dates: start: 20121025, end: 20130727

REACTIONS (8)
  - Road traffic accident [Unknown]
  - Oropharyngeal pain [Recovered/Resolved]
  - Blood magnesium decreased [Unknown]
  - Blood iron decreased [Unknown]
  - Depression [Unknown]
  - Abdominal discomfort [Unknown]
  - Glucose tolerance test abnormal [Unknown]
  - Nasopharyngitis [Recovered/Resolved]
